FAERS Safety Report 8142195-2 (Version None)
Quarter: 2012Q1

REPORT INFORMATION
  Report Type: 
  Country: None (occurrence: None)
  Receive Date: 20120216
  Receipt Date: 20120210
  Transmission Date: 20120608
  Serious: Yes (Other)
  Sender: FDA-Public Use
  Company Number: US-ASTRAZENECA-2012SE09216

PATIENT

DRUGS (2)
  1. MERREM [Suspect]
     Indication: BACTERAEMIA
     Route: 042
  2. OTHER MEDICATIONS [Suspect]
     Route: 065

REACTIONS (1)
  - PANCREATITIS [None]
